FAERS Safety Report 8554504-0 (Version None)
Quarter: 2012Q3

REPORT INFORMATION
  Report Type: 
  Country: None (occurrence: None)
  Receive Date: 20120731
  Receipt Date: 20120725
  Transmission Date: 20120928
  Serious: Yes (Hospitalization)
  Sender: FDA-Public Use
  Company Number: US-CELGENEUS-163-21880-12072893

PATIENT
  Sex: Male

DRUGS (2)
  1. REVLIMID [Suspect]
     Indication: MULTIPLE MYELOMA
     Dosage: 25 MILLIGRAM
     Dates: start: 20120201
  2. REVLIMID [Suspect]
     Dosage: 10 MILLIGRAM
     Dates: start: 20120501

REACTIONS (4)
  - HYPOTENSION [None]
  - DYSPNOEA [None]
  - PYREXIA [None]
  - CARDIAC VALVE DISEASE [None]
